FAERS Safety Report 5161244-7 (Version None)
Quarter: 2006Q4

REPORT INFORMATION
  Report Type: 
  Country: None (occurrence: None)
  Receive Date: 20061130
  Receipt Date: 20060906
  Transmission Date: 20070319
  Serious: No
  Sender: FDA-Public Use
  Company Number: US-BRISTOL-MYERS SQUIBB COMPANY-13500939

PATIENT
  Age: 70 Year
  Sex: Male

DRUGS (2)
  1. ERBITUX [Suspect]
  2. CPT-11 [Concomitant]

REACTIONS (4)
  - HYPERAESTHESIA [None]
  - SKIN ATROPHY [None]
  - SKIN EXFOLIATION [None]
  - SKIN IRRITATION [None]
